FAERS Safety Report 5696480-4 (Version None)
Quarter: 2008Q2

REPORT INFORMATION
  Report Type: 
  Country: None (occurrence: None)
  Receive Date: 20080408
  Receipt Date: 20080311
  Transmission Date: 20081010
  Serious: No
  Sender: FDA-Public Use
  Company Number: US-BOEHRINGER INGELHEIM GMBH, GERMANY-2007-BP-19566BP

PATIENT
  Age: 67 Year
  Sex: Female

DRUGS (11)
  1. CATAPRES-TTS-1 [Suspect]
     Indication: HYPERTENSION
     Route: 061
     Dates: start: 20070820
  2. LASIX [Concomitant]
     Indication: HYPERTENSION
  3. ATENOLOL [Concomitant]
     Indication: TACHYCARDIA
  4. PAXIL [Concomitant]
  5. ACIPHEX [Concomitant]
  6. SYNTHROID [Concomitant]
  7. VICODIN [Concomitant]
  8. DOXEPIN HCL [Concomitant]
  9. SINGULAIR [Concomitant]
  10. ZOCOR [Concomitant]
  11. KLONOPIN [Concomitant]

REACTIONS (3)
  - DIZZINESS [None]
  - DRUG INEFFECTIVE [None]
  - FATIGUE [None]
